FAERS Safety Report 7259326 (Version 3)
Quarter: 2015Q2

REPORT INFORMATION
  Report Type: Spontaneous
  Country: US (occurrence: US)
  Receive Date: 20100128
  Receipt Date: 20150619
  Transmission Date: 20150821
  Serious: Yes (Hospitalization)
  Sender: FDA-Public Use
  Company Number: US-SANOFI-AVENTIS-2010SA003427

PATIENT
  Age: 71 Year
  Sex: Male

DRUGS (2)
  1. ENOXAPARIN SODIUM. [Suspect]
     Active Substance: ENOXAPARIN SODIUM
     Indication: JUGULAR VEIN THROMBOSIS
     Route: 065
  2. ENOXAPARIN SODIUM. [Suspect]
     Active Substance: ENOXAPARIN SODIUM
     Indication: JUGULAR VEIN THROMBOSIS
     Route: 065

REACTIONS (7)
  - Rash pruritic [Recovering/Resolving]
  - Rash macular [Recovering/Resolving]
  - Epidermal necrosis [Recovering/Resolving]
  - Dermatitis bullous [Recovering/Resolving]
  - Blister [Recovering/Resolving]
  - Erythema multiforme [Recovering/Resolving]
  - Lymphocytic infiltration [Recovering/Resolving]
